FAERS Safety Report 18986480 (Version 1)
Quarter: 2021Q1

REPORT INFORMATION
  Report Type: Spontaneous
  Country: US (occurrence: US)
  Receive Date: 20210308
  Receipt Date: 20210308
  Transmission Date: 20210420
  Serious: Yes (Other)
  Sender: FDA-Public Use
  Company Number: None

PATIENT
  Age: 34 Year
  Sex: Female
  Weight: 113.4 kg

DRUGS (3)
  1. VITAMIN [Concomitant]
     Active Substance: VITAMINS
  2. PROBIOTICS [Concomitant]
     Active Substance: PROBIOTICS NOS
  3. NEXPLANON [Suspect]
     Active Substance: ETONOGESTREL
     Dates: start: 20180913, end: 20210304

REACTIONS (2)
  - Complication associated with device [None]
  - Device dislocation [None]

NARRATIVE: CASE EVENT DATE: 20210219
